FAERS Safety Report 7277621 (Version 10)
Quarter: 2012Q4

REPORT INFORMATION
  Report Type: 
  Country: CA (occurrence: CA)
  Receive Date: 20100212
  Receipt Date: 20121109
  Transmission Date: 20130627
  Serious: Yes (Other)
  Sender: FDA-Public Use
  Company Number: PHHY2010CA06800

PATIENT
  Sex: Female

DRUGS (1)
  1. SANDOSTATIN LAR [Suspect]
     Indication: ACROMEGALY
     Dosage: 20 mg, every 4 weeks
     Route: 030
     Dates: start: 20070310

REACTIONS (13)
  - Cystitis [Unknown]
  - Joint stiffness [Unknown]
  - Poor quality sleep [Unknown]
  - Disturbance in attention [Unknown]
  - Arthralgia [Unknown]
  - Musculoskeletal pain [Unknown]
  - Pain in extremity [Unknown]
  - Pain [Unknown]
  - Groin pain [Unknown]
  - Facial pain [Unknown]
  - Blood glucose increased [Unknown]
  - Fatigue [Unknown]
  - Headache [Unknown]
